FAERS Safety Report 20632454 (Version 1)
Quarter: 2022Q1

REPORT INFORMATION
  Report Type: Spontaneous
  Country: US (occurrence: None)
  Receive Date: 20220324
  Receipt Date: 20220324
  Transmission Date: 20220423
  Serious: No
  Sender: FDA-Public Use
  Company Number: None

PATIENT

DRUGS (1)
  1. AQUASOL A [Suspect]
     Active Substance: VITAMIN A PALMITATE
     Dosage: OTHER STRENGTH : 50000 UNITS/ML;?
     Route: 030

REACTIONS (2)
  - Product label confusion [None]
  - Product label issue [None]
